FAERS Safety Report 18483762 (Version 1)
Quarter: 2020Q4

REPORT INFORMATION
  Report Type: Spontaneous
  Country: DE (occurrence: DE)
  Receive Date: 20201110
  Receipt Date: 20201110
  Transmission Date: 20210114
  Serious: Yes (Hospitalization, Other)
  Sender: FDA-Public Use
  Company Number: DE-009507513-2011DEU000731

PATIENT
  Age: 85 Year
  Sex: Female

DRUGS (7)
  1. FLUTICASONE FUROATE (+) VILANTEROL [Concomitant]
     Active Substance: FLUTICASONE FUROATE\VILANTEROL TRIFENATATE
     Dosage: 1 DOSAGE FORM, QD (200/25 MICROGRAM, 1-0-0-0)
  2. VERAPAMIL [Concomitant]
     Active Substance: VERAPAMIL HYDROCHLORIDE
     Dosage: 120 MILLIGRAM, Q12H (240 MG, 0.5-0-0.5-0)
  3. SIMVASTATIN. [Suspect]
     Active Substance: SIMVASTATIN
     Dosage: 20 MILLIGRAM, QD (20 MG, 0-0-1-0)
  4. MEMANTINE. [Concomitant]
     Active Substance: MEMANTINE
     Dosage: 20 MILLIGRAM, QD (20 MG, 1-0-0-0)
  5. HYDROXOCOBALAMIN ACETATE. [Concomitant]
     Active Substance: HYDROXOCOBALAMIN ACETATE
     Dosage: 0.02 MG, 1-0-0-0
  6. PHENPROCOUMON [Suspect]
     Active Substance: PHENPROCOUMON
     Dosage: 3 MILLIGRAM, PRN (AS NECESSARY), 3 MG BY VALUE
  7. RAMIPRIL. [Concomitant]
     Active Substance: RAMIPRIL
     Dosage: 2.5 MILLIGRAM, QD (2.5 MG, 1-0-0-0)

REACTIONS (5)
  - Balance disorder [Unknown]
  - Depressed level of consciousness [Unknown]
  - Fall [Unknown]
  - Visual impairment [Unknown]
  - Personality change [Unknown]

NARRATIVE: CASE EVENT DATE: 20200220
